FAERS Safety Report 25555401 (Version 1)
Quarter: 2025Q3

REPORT INFORMATION
  Report Type: Spontaneous
  Country: BR (occurrence: BR)
  Receive Date: 20250715
  Receipt Date: 20250715
  Transmission Date: 20251021
  Serious: Yes (Other)
  Sender: MYLAN
  Company Number: BR-MYLANLABS-2025M1059390

PATIENT
  Age: 39 Year
  Sex: Female

DRUGS (12)
  1. LATANOPROST [Suspect]
     Active Substance: LATANOPROST
     Indication: Glaucoma
  2. LATANOPROST [Suspect]
     Active Substance: LATANOPROST
     Indication: Iridocorneal endothelial syndrome
     Route: 065
  3. LATANOPROST [Suspect]
     Active Substance: LATANOPROST
     Route: 065
  4. LATANOPROST [Suspect]
     Active Substance: LATANOPROST
  5. TIMOLOL MALEATE [Suspect]
     Active Substance: TIMOLOL MALEATE
     Indication: Glaucoma
  6. TIMOLOL MALEATE [Suspect]
     Active Substance: TIMOLOL MALEATE
     Indication: Iridocorneal endothelial syndrome
     Route: 065
  7. TIMOLOL MALEATE [Suspect]
     Active Substance: TIMOLOL MALEATE
     Route: 065
  8. TIMOLOL MALEATE [Suspect]
     Active Substance: TIMOLOL MALEATE
  9. BRIMONIDINE TARTRATE [Suspect]
     Active Substance: BRIMONIDINE TARTRATE
     Indication: Glaucoma
  10. BRIMONIDINE TARTRATE [Suspect]
     Active Substance: BRIMONIDINE TARTRATE
     Indication: Iridocorneal endothelial syndrome
     Route: 065
  11. BRIMONIDINE TARTRATE [Suspect]
     Active Substance: BRIMONIDINE TARTRATE
     Route: 065
  12. BRIMONIDINE TARTRATE [Suspect]
     Active Substance: BRIMONIDINE TARTRATE

REACTIONS (1)
  - Drug ineffective [Unknown]

NARRATIVE: CASE EVENT DATE: 20231101
